FAERS Safety Report 10061952 (Version 1)
Quarter: 2014Q2

REPORT INFORMATION
  Report Type: Spontaneous
  Country: US (occurrence: None)
  Receive Date: 20140404
  Receipt Date: 20140404
  Transmission Date: 20141212
  Serious: Yes (Hospitalization)
  Sender: FDA-Public Use
  Company Number: None

PATIENT
  Sex: Female

DRUGS (2)
  1. CYTARABINE [Suspect]
  2. IDARUBICIN [Suspect]

REACTIONS (9)
  - Liver abscess [None]
  - Pneumonia klebsiella [None]
  - Febrile neutropenia [None]
  - Malaise [None]
  - Abdominal pain [None]
  - Haemolysis [None]
  - Pulmonary alveolar haemorrhage [None]
  - Coagulopathy [None]
  - Cardio-respiratory arrest [None]
